FAERS Safety Report 23015188 (Version 1)
Quarter: 2023Q4

REPORT INFORMATION
  Report Type: Spontaneous
  Country: DE (occurrence: None)
  Receive Date: 20231002
  Receipt Date: 20231002
  Transmission Date: 20240110
  Serious: Yes (Life-Threatening, Hospitalization, Other)
  Sender: FDA-Public Use
  Company Number: 2023A196082

PATIENT
  Sex: Male
  Weight: 60 kg

DRUGS (1)
  1. TEZSPIRE [Suspect]
     Active Substance: TEZEPELUMAB-EKKO
     Dosage: 210.0MG UNKNOWN

REACTIONS (5)
  - Anaphylactic shock [Unknown]
  - Urticaria [Unknown]
  - Blood pressure decreased [Unknown]
  - Pneumomediastinum [Unknown]
  - Drug ineffective [Unknown]
